FAERS Safety Report 9321331 (Version 1)
Quarter: 2013Q2

REPORT INFORMATION
  Report Type: Spontaneous
  Country: US (occurrence: US)
  Receive Date: 20130531
  Receipt Date: 20130531
  Transmission Date: 20140414
  Serious: Yes (Other)
  Sender: FDA-Public Use
  Company Number: US-ALEXION-A201301217

PATIENT
  Sex: Male

DRUGS (1)
  1. SOLIRIS 300MG [Suspect]
     Indication: PAROXYSMAL NOCTURNAL HAEMOGLOBINURIA
     Dosage: UNK
     Route: 042

REACTIONS (7)
  - Haemoglobin decreased [Unknown]
  - Pollakiuria [Unknown]
  - Urinary retention [Unknown]
  - Abasia [Unknown]
  - Somnolence [Unknown]
  - Malaise [Unknown]
  - Asthenia [Unknown]
